FAERS Safety Report 5003737-9 (Version None)
Quarter: 2006Q2

REPORT INFORMATION
  Report Type: 
  Country: None (occurrence: None)
  Receive Date: 20060511
  Receipt Date: 20060502
  Transmission Date: 20061013
  Serious: Yes (Hospitalization)
  Sender: FDA-Public Use
  Company Number: 2006-05-0060

PATIENT
  Age: 64 Year
  Sex: Male

DRUGS (3)
  1. TEMODAL [Suspect]
     Indication: GLIOBLASTOMA
     Dosage: 6 CYCLE(S)
  2. CHEMOTHERAPY REGIMENS [Concomitant]
  3. RADIATION THERAPY [Concomitant]

REACTIONS (2)
  - CHILLS [None]
  - PYREXIA [None]
